FAERS Safety Report 16008119 (Version 2)
Quarter: 2019Q1

REPORT INFORMATION
  Report Type: Spontaneous
  Country: CN (occurrence: CN)
  Receive Date: 20190224
  Receipt Date: 20190311
  Transmission Date: 20190418
  Serious: Yes (Other)
  Sender: FDA-Public Use
  Company Number: PHHY2019CN039266

PATIENT
  Age: 40 Year
  Sex: Male

DRUGS (2)
  1. CEPHALOSPORINES [Concomitant]
     Active Substance: UNSPECIFIED INGREDIENT
     Indication: TOOTHACHE
     Route: 065
  2. TEGRETOL [Suspect]
     Active Substance: CARBAMAZEPINE
     Indication: NEURALGIA
     Dosage: 2 DF, TID
     Route: 065
     Dates: end: 20190217

REACTIONS (3)
  - Blood pressure increased [Recovering/Resolving]
  - Extra dose administered [Unknown]
  - Dizziness [Recovering/Resolving]

NARRATIVE: CASE EVENT DATE: 20190217
